FAERS Safety Report 6851898-9 (Version None)
Quarter: 2010Q3

REPORT INFORMATION
  Report Type: 
  Country: None (occurrence: None)
  Receive Date: 20100717
  Receipt Date: 20071104
  Transmission Date: 20110219
  Serious: No
  Sender: FDA-Public Use
  Company Number: US-PFIZER INC-2007093159

PATIENT
  Sex: Female
  Weight: 56.7 kg

DRUGS (1)
  1. CHANTIX [Suspect]
     Dates: start: 20071001, end: 20071001

REACTIONS (1)
  - NAUSEA [None]
